FAERS Safety Report 8192984-3 (Version None)
Quarter: 2012Q1

REPORT INFORMATION
  Report Type: 
  Country: None (occurrence: None)
  Receive Date: 20120308
  Receipt Date: 20120228
  Transmission Date: 20120608
  Serious: Yes (Other)
  Sender: FDA-Public Use
  Company Number: IL-JNJFOC-20120302455

PATIENT
  Age: 65 Year
  Sex: Male

DRUGS (25)
  1. DOXORUBICIN HCL [Suspect]
     Indication: DIFFUSE LARGE B-CELL LYMPHOMA
     Route: 042
  2. DOXORUBICIN HCL [Suspect]
     Route: 042
  3. DOXORUBICIN HCL [Suspect]
     Route: 042
  4. CYCLOPHOSPHAMIDE [Suspect]
     Route: 065
  5. RITUXIMAB [Suspect]
     Indication: DIFFUSE LARGE B-CELL LYMPHOMA
     Route: 065
  6. RITUXIMAB [Suspect]
     Route: 065
  7. RITUXIMAB [Suspect]
     Route: 065
  8. VINCRISTINE [Suspect]
     Route: 065
  9. VINCRISTINE [Suspect]
     Route: 065
  10. PREDNISONE TAB [Suspect]
     Route: 065
  11. RITUXIMAB [Suspect]
     Route: 065
  12. CYCLOPHOSPHAMIDE [Suspect]
     Route: 065
  13. PREDNISONE TAB [Suspect]
     Indication: DIFFUSE LARGE B-CELL LYMPHOMA
     Route: 065
  14. PREDNISONE TAB [Suspect]
     Route: 065
  15. CYCLOPHOSPHAMIDE [Suspect]
     Route: 065
  16. VINCRISTINE [Suspect]
     Route: 065
  17. DOXORUBICIN HCL [Suspect]
     Route: 042
  18. RITUXIMAB [Suspect]
     Route: 065
  19. CYCLOPHOSPHAMIDE [Suspect]
     Route: 065
  20. VINCRISTINE [Suspect]
     Indication: DIFFUSE LARGE B-CELL LYMPHOMA
     Route: 065
  21. PREDNISONE TAB [Suspect]
     Route: 065
  22. CYCLOPHOSPHAMIDE [Suspect]
     Indication: DIFFUSE LARGE B-CELL LYMPHOMA
     Route: 065
  23. DOXORUBICIN HCL [Suspect]
     Route: 042
  24. VINCRISTINE [Suspect]
     Route: 065
  25. PREDNISONE TAB [Suspect]
     Route: 065

REACTIONS (1)
  - PNEUMOCYSTIS JIROVECI PNEUMONIA [None]
